FAERS Safety Report 6109660-0 (Version None)
Quarter: 2009Q1

REPORT INFORMATION
  Report Type: 
  Country: None (occurrence: None)
  Receive Date: 20090310
  Receipt Date: 20080131
  Transmission Date: 20090719
  Serious: No
  Sender: FDA-Public Use
  Company Number: A0706555A

PATIENT
  Sex: Female

DRUGS (1)
  1. NICORETTE [Suspect]
     Indication: DRUG USE FOR UNKNOWN INDICATION

REACTIONS (4)
  - BURNING SENSATION [None]
  - INTENTIONAL DRUG MISUSE [None]
  - MYALGIA [None]
  - PARAESTHESIA [None]
